FAERS Safety Report 9109169 (Version 1)
Quarter: 2013Q1

REPORT INFORMATION
  Report Type: Spontaneous
  Country: IT (occurrence: IT)
  Receive Date: 20130222
  Receipt Date: 20130222
  Transmission Date: 20140127
  Serious: Yes (Hospitalization)
  Sender: FDA-Public Use
  Company Number: IT-GLAXOSMITHKLINE-B0869893A

PATIENT
  Age: 69 Year
  Sex: Female

DRUGS (1)
  1. WELLBUTRIN [Suspect]
     Indication: DEPRESSION
     Dosage: 4500MG PER DAY
     Route: 065
     Dates: start: 20121221, end: 20121222

REACTIONS (4)
  - Suicide attempt [Not Recovered/Not Resolved]
  - Drug abuse [Not Recovered/Not Resolved]
  - Breath odour [Not Recovered/Not Resolved]
  - Vomiting [Not Recovered/Not Resolved]
